FAERS Safety Report 4861537-4 (Version None)
Quarter: 2005Q4

REPORT INFORMATION
  Report Type: 
  Country: None (occurrence: None)
  Receive Date: 20051220
  Receipt Date: 20051209
  Transmission Date: 20060501
  Serious: Yes (Other)
  Sender: FDA-Public Use
  Company Number: CA-BRISTOL-MYERS SQUIBB COMPANY-13217237

PATIENT
  Age: 75 Year
  Sex: Female

DRUGS (10)
  1. TEQUIN [Suspect]
     Route: 048
  2. DIABETA [Concomitant]
  3. FORTAZ [Concomitant]
  4. LOTENSIN [Concomitant]
  5. MERREM [Concomitant]
  6. NAPROSYN [Concomitant]
  7. PRAVACHOL [Concomitant]
  8. PRINIVIL [Concomitant]
  9. SERAX [Concomitant]
  10. SYNTHROID [Concomitant]

REACTIONS (1)
  - HYPOGLYCAEMIA [None]
